FAERS Safety Report 11595546 (Version 1)
Quarter: 2015Q4

REPORT INFORMATION
  Report Type: Spontaneous
  Country: US (occurrence: None)
  Receive Date: 20151005
  Receipt Date: 20151005
  Transmission Date: 20160304
  Serious: Yes (Other)
  Sender: FDA-Public Use
  Company Number: None

PATIENT
  Age: 59 Year
  Sex: Male
  Weight: 79.38 kg

DRUGS (21)
  1. SENSIPAR [Suspect]
     Active Substance: CINACALCET HYDROCHLORIDE
     Indication: HYPERPARATHYROIDISM SECONDARY
     Dosage: QHS/BETIME
     Route: 048
     Dates: start: 20150827, end: 20151003
  2. ASPIRIN. [Concomitant]
     Active Substance: ASPIRIN
  3. ATORVASTATIN [Concomitant]
     Active Substance: ATORVASTATIN
  4. HYDROCODONE 5/325 [Concomitant]
  5. FISH OIL [Concomitant]
     Active Substance: FISH OIL
  6. AMLODIPINE [Concomitant]
     Active Substance: AMLODIPINE BESYLATE
  7. HUMALOG [Concomitant]
     Active Substance: INSULIN LISPRO
  8. SENSIPAR [Suspect]
     Active Substance: CINACALCET HYDROCHLORIDE
     Indication: CHRONIC KIDNEY DISEASE
     Dosage: QHS/BETIME
     Route: 048
     Dates: start: 20150827, end: 20151003
  9. CARDURA [Concomitant]
     Active Substance: DOXAZOSIN MESYLATE
  10. RENVELA [Concomitant]
     Active Substance: SEVELAMER CARBONATE
  11. PANTOPRAZOLE [Concomitant]
     Active Substance: PANTOPRAZOLE SODIUM
  12. METOPROLOL TARTRATE. [Concomitant]
     Active Substance: METOPROLOL TARTRATE
  13. REQUIP [Concomitant]
     Active Substance: ROPINIROLE HYDROCHLORIDE
  14. VITAMIN D3 [Concomitant]
     Active Substance: CHOLECALCIFEROL
  15. GENERIC PLAVIX [Concomitant]
     Active Substance: CLOPIDOGREL BISULFATE
  16. SENSIPAR [Suspect]
     Active Substance: CINACALCET HYDROCHLORIDE
     Indication: DIALYSIS
     Dosage: QHS/BETIME
     Route: 048
     Dates: start: 20150827, end: 20151003
  17. XANAX [Concomitant]
     Active Substance: ALPRAZOLAM
  18. CELEXA [Concomitant]
     Active Substance: CITALOPRAM HYDROBROMIDE
  19. RENAL VITAMIN [Concomitant]
  20. LOSARTAN. [Concomitant]
     Active Substance: LOSARTAN
  21. AMBIEN [Concomitant]
     Active Substance: ZOLPIDEM TARTRATE

REACTIONS (3)
  - Delusion [None]
  - Mood swings [None]
  - Hallucination, auditory [None]

NARRATIVE: CASE EVENT DATE: 20150907
